FAERS Safety Report 16548529 (Version 3)
Quarter: 2019Q3

REPORT INFORMATION
  Report Type: Spontaneous
  Country: ES (occurrence: ES)
  Receive Date: 20190709
  Receipt Date: 20190819
  Transmission Date: 20191004
  Serious: Yes (Other)
  Sender: FDA-Public Use
  Company Number: PHHY2019ES156461

PATIENT
  Age: 51 Year
  Sex: Female

DRUGS (11)
  1. PREDNISONE. [Suspect]
     Active Substance: PREDNISONE
     Indication: SYSTEMIC LUPUS ERYTHEMATOSUS
     Dosage: 30 MG, QD
     Route: 065
  2. PREDNISONE. [Suspect]
     Active Substance: PREDNISONE
     Indication: RHEUMATOID ARTHRITIS
  3. PREDNISONE. [Suspect]
     Active Substance: PREDNISONE
     Indication: PLEURISY
  4. ASPIRIN. [Concomitant]
     Active Substance: ASPIRIN
     Indication: ANTIPHOSPHOLIPID ANTIBODIES POSITIVE
     Dosage: 100 MG, QD
     Route: 065
  5. METHOTREXATE. [Suspect]
     Active Substance: METHOTREXATE
     Indication: SYSTEMIC LUPUS ERYTHEMATOSUS
     Dosage: 15 MG, QW
     Route: 065
  6. LEFLUNOMIDE. [Suspect]
     Active Substance: LEFLUNOMIDE
     Indication: SYSTEMIC LUPUS ERYTHEMATOSUS
     Dosage: 20 MG, QD
     Route: 065
  7. PREDNISONE. [Suspect]
     Active Substance: PREDNISONE
     Indication: IMMUNOSUPPRESSION
  8. HYDROXYCHLOROQUINE [Suspect]
     Active Substance: HYDROXYCHLOROQUINE
     Indication: IMMUNOSUPPRESSION
     Dosage: 400 MG, Q12H
     Route: 065
  9. METHOTREXATE. [Suspect]
     Active Substance: METHOTREXATE
     Indication: IMMUNOSUPPRESSION
  10. LEFLUNOMIDE. [Suspect]
     Active Substance: LEFLUNOMIDE
     Indication: RHEUMATOID ARTHRITIS
  11. LEFLUNOMIDE. [Suspect]
     Active Substance: LEFLUNOMIDE
     Indication: IMMUNOSUPPRESSION

REACTIONS (8)
  - Pleural effusion [Recovered/Resolved]
  - Off label use [Unknown]
  - Systemic lupus erythematosus [Unknown]
  - Pericarditis [Unknown]
  - Treatment failure [Unknown]
  - Pleurisy [Unknown]
  - Pneumonia [Recovered/Resolved]
  - Product use in unapproved indication [Unknown]
